FAERS Safety Report 10979346 (Version 3)
Quarter: 2015Q3

REPORT INFORMATION
  Report Type: Spontaneous
  Country: DE (occurrence: DE)
  Receive Date: 20150402
  Receipt Date: 20150716
  Transmission Date: 20151125
  Serious: Yes (Disabling, Other)
  Sender: FDA-Public Use
  Company Number: DE-PFIZER INC-2015112103

PATIENT
  Sex: Female

DRUGS (12)
  1. TRIMETHADIONE [Suspect]
     Active Substance: TRIMETHADIONE
     Indication: EPILEPSY
  2. TRIMETHADIONE [Suspect]
     Active Substance: TRIMETHADIONE
     Indication: GENERALISED TONIC-CLONIC SEIZURE
  3. APYDAN [Suspect]
     Active Substance: OXCARBAZEPINE
     Indication: GENERALISED TONIC-CLONIC SEIZURE
  4. GLYBORAL [Suspect]
     Active Substance: GLYBURIDE
     Indication: GENERALISED TONIC-CLONIC SEIZURE
  5. PHENYTOIN. [Suspect]
     Active Substance: PHENYTOIN
     Indication: GENERALISED TONIC-CLONIC SEIZURE
  6. TRIMETHADIONE [Suspect]
     Active Substance: TRIMETHADIONE
     Indication: PETIT MAL EPILEPSY
  7. PHENYTOIN. [Suspect]
     Active Substance: PHENYTOIN
     Indication: EPILEPSY
     Dosage: UNK
  8. APYDAN [Suspect]
     Active Substance: OXCARBAZEPINE
     Indication: EPILEPSY
  9. GLYBORAL [Suspect]
     Active Substance: GLYBURIDE
     Indication: EPILEPSY
  10. APYDAN [Suspect]
     Active Substance: OXCARBAZEPINE
     Indication: PETIT MAL EPILEPSY
  11. PHENYTOIN. [Suspect]
     Active Substance: PHENYTOIN
     Indication: PETIT MAL EPILEPSY
     Dosage: 100 MG, 1X/DAY
  12. GLYBORAL [Suspect]
     Active Substance: GLYBURIDE
     Indication: PETIT MAL EPILEPSY

REACTIONS (5)
  - Cerebellar atrophy [Unknown]
  - Toxicity to various agents [Recovering/Resolving]
  - Ataxia [Recovering/Resolving]
  - Drug ineffective [Unknown]
  - Coordination abnormal [Unknown]
